FAERS Safety Report 5938416-4 (Version None)
Quarter: 2008Q4

REPORT INFORMATION
  Report Type: 
  Country: None (occurrence: None)
  Receive Date: 20081103
  Receipt Date: 20081021
  Transmission Date: 20090506
  Serious: Yes (Death, Other)
  Sender: FDA-Public Use
  Company Number: ES-CELGENEUS-144-21880-08101392

PATIENT

DRUGS (5)
  1. REVLIMID [Suspect]
     Indication: MYELOMA RECURRENCE
     Dosage: 15/10MG IN CASE OF RENAL FAILURE
     Route: 048
  2. DEXAMETHASONE [Concomitant]
     Indication: MYELOMA RECURRENCE
     Dosage: 20/40 MILLIGRAM
     Route: 048
  3. CYCLOPHOSPHAMIDE [Concomitant]
     Indication: MYELOMA RECURRENCE
     Route: 048
  4. ENOXAPARIN SODIUM [Concomitant]
     Dosage: 40/20 MILLIGRAM
     Route: 065
  5. AAS [Concomitant]
     Indication: PLATELET AGGREGATION INHIBITION
     Route: 048

REACTIONS (5)
  - DEEP VEIN THROMBOSIS [None]
  - DISEASE PROGRESSION [None]
  - NEUTROPENIA [None]
  - PYREXIA [None]
  - THROMBOCYTOPENIA [None]
